FAERS Safety Report 19996194 (Version 1)
Quarter: 2021Q4

REPORT INFORMATION
  Report Type: Spontaneous
  Country: US (occurrence: US)
  Receive Date: 20211026
  Receipt Date: 20211026
  Transmission Date: 20220303
  Serious: No
  Sender: FDA-Public Use
  Company Number: US-PFIZER INC-2019541650

PATIENT
  Age: 67 Year
  Sex: Male

DRUGS (1)
  1. PREGABALIN [Suspect]
     Active Substance: PREGABALIN
     Indication: Neuropathy peripheral
     Dosage: 900 MG, DAILY (TAKE 3 CAPSULES PER DAY)

REACTIONS (2)
  - Prescribed overdose [Unknown]
  - Drug ineffective [Unknown]
